FAERS Safety Report 8737983 (Version 2)
Quarter: 2013Q4

REPORT INFORMATION
  Report Type: Report from Study
  Country: US (occurrence: US)
  Receive Date: 20120823
  Receipt Date: 20131031
  Transmission Date: 20140711
  Serious: Yes (Other)
  Sender: FDA-Public Use
  Company Number: US-009507513-2012SP019168

PATIENT
  Sex: Male

DRUGS (7)
  1. PEGINTRON [Suspect]
     Indication: HEPATITIS C
     Dosage: UNK UNK, UNKNOWN
     Dates: start: 20120207
  2. REBETOL [Suspect]
     Indication: HEPATITIS C
     Dosage: UNK UNK, UNKNOWN
     Dates: start: 20120207
  3. TELAPREVIR [Suspect]
     Indication: HEPATITIS C
     Dosage: UNK UNK, UNKNOWN
     Dates: start: 20120207
  4. MORPHINE [Concomitant]
     Dosage: UNK UNK, UNKNOWN
  5. SYNTHROID [Concomitant]
     Indication: HYPOTHYROIDISM
     Dosage: UNK UNK, UNKNOWN
  6. OXYCODONE [Concomitant]
     Dosage: UNK UNK, UNKNOWN
  7. NEXIUM [Concomitant]
     Dosage: UNK UNK, UNKNOWN

REACTIONS (16)
  - Pneumonia [Unknown]
  - Diplopia [Unknown]
  - Lung disorder [Unknown]
  - Dizziness [Unknown]
  - Nausea [Unknown]
  - Influenza [Unknown]
  - Decreased appetite [Unknown]
  - Weight decreased [Unknown]
  - Pruritus [Recovered/Resolved]
  - Dyspnoea [Unknown]
  - Asthenia [Unknown]
  - Haemoglobin abnormal [Unknown]
  - Irritability [Unknown]
  - Pain [Unknown]
  - Nausea [Unknown]
  - Fatigue [Unknown]
